FAERS Safety Report 9184449 (Version 1)
Quarter: 2013Q1

REPORT INFORMATION
  Report Type: Spontaneous
  Country: FR (occurrence: FR)
  Receive Date: 20130322
  Receipt Date: 20130322
  Transmission Date: 20140127
  Serious: Yes (Disabling, Other)
  Sender: FDA-Public Use
  Company Number: FR-ELI_LILLY_AND_COMPANY-FR201303004305

PATIENT
  Age: 54 Year
  Sex: Female

DRUGS (3)
  1. ALIMTA [Suspect]
     Indication: LUNG ADENOCARCINOMA METASTATIC
     Dosage: 790 MG, 3/W
     Route: 042
     Dates: start: 20121105, end: 20130108
  2. AVASTIN [Concomitant]
     Indication: LUNG ADENOCARCINOMA METASTATIC
     Dosage: 470 MG, OTHER
     Route: 065
     Dates: start: 20121105, end: 20130108
  3. CISPLATINE [Concomitant]
     Indication: LUNG ADENOCARCINOMA METASTATIC
     Dosage: 120 MG, OTHER
     Route: 065
     Dates: start: 20121105, end: 20130108

REACTIONS (6)
  - Hemiplegia [Recovered/Resolved with Sequelae]
  - Cerebrovascular accident [Unknown]
  - Intracardiac thrombus [Recovered/Resolved with Sequelae]
  - Carotid artery thrombosis [Unknown]
  - Arteriosclerosis [Unknown]
  - Off label use [Unknown]
